FAERS Safety Report 6830630-9 (Version None)
Quarter: 2010Q3

REPORT INFORMATION
  Report Type: 
  Country: None (occurrence: None)
  Receive Date: 20100709
  Receipt Date: 20100709
  Transmission Date: 20110219
  Serious: Yes (Hospitalization)
  Sender: FDA-Public Use
  Company Number: None

PATIENT
  Sex: Male
  Weight: 75.9 kg

DRUGS (2)
  1. CISPLATIN [Suspect]
     Indication: HEAD AND NECK CANCER
     Dosage: 209 MG DAY 1 IV
     Route: 042
     Dates: start: 20100628
  2. RAD001 2.5 MG TABLET NOVARTIS [Suspect]
     Indication: HEAD AND NECK CANCER
     Dosage: 2.5 MG DAILY ORAL
     Route: 048
     Dates: start: 20100628, end: 20100706

REACTIONS (1)
  - RENAL FAILURE ACUTE [None]
